FAERS Safety Report 7216949-0 (Version None)
Quarter: 2011Q1

REPORT INFORMATION
  Report Type: 
  Country: None (occurrence: None)
  Receive Date: 20110110
  Receipt Date: 20110105
  Transmission Date: 20110831
  Serious: No
  Sender: FDA-Public Use
  Company Number: US-ROXANE LABORATORIES, INC.-2011-RO-00022RO

PATIENT
  Age: 69 Year
  Sex: Male

DRUGS (5)
  1. CRESTOR [Concomitant]
  2. METOPROLOL TARTRATE [Concomitant]
  3. LISINOPRIL [Concomitant]
  4. TRIAMTERENE AND HYDROCHLOROTHIAZIDE [Concomitant]
  5. FLUTICASONE PROPIONATE [Suspect]
     Indication: UPPER-AIRWAY COUGH SYNDROME
     Route: 045
     Dates: start: 20110103

REACTIONS (1)
  - DYSGEUSIA [None]
